FAERS Safety Report 10649063 (Version 1)
Quarter: 2014Q4

REPORT INFORMATION
  Report Type: Spontaneous
  Country: US (occurrence: None)
  Receive Date: 20141205
  Receipt Date: 20141205
  Transmission Date: 20150529
  Serious: No
  Sender: FDA-Public Use
  Company Number: 163-POMAL-14084253

PATIENT
  Age: 61 Year
  Sex: Female
  Weight: 94.44 kg

DRUGS (28)
  1. CLOBETASOL PROPIONATE(CLOBETASOL PROPIONATE) (UNKNOWN) [Concomitant]
  2. DEXAMETHASONE(DEXAMETHASONE) (TABLETS) [Concomitant]
  3. RANITIDINE HCL(RANITIDINE HYDROCHLORIDE) (TABLETS) [Concomitant]
  4. TRAZODONE HCL(TRAZODONE HYDROCHLORIDE) (TABLETS) [Concomitant]
  5. CLONAZEPAM(CLONAZEPAM) (TABLETS) [Concomitant]
  6. ZOCOR(SIMVASTATIN) (TABLETS) [Concomitant]
  7. MOTRIN(IBUPROFEN)(UNKNOWN) [Concomitant]
  8. POMALYST [Suspect]
     Active Substance: POMALIDOMIDE
     Indication: PLASMA CELL MYELOMA
     Dosage: 21 IN 28 D
     Route: 048
     Dates: start: 20140731, end: 20140818
  9. MAGNESIUM(MAGNESIUM) (TABLETS) [Concomitant]
  10. PHENERGAN(PROMETHAZINE) (TABLETS) [Concomitant]
  11. REQUIP(ROPINIROLE HYDROCHLORIDE) (TABLETS) [Concomitant]
  12. KLONOPIN(CLONAZEPAM) (UNKNOWN) [Concomitant]
  13. CELEBREX(CELECOXIB)(UNKNOWN) [Concomitant]
  14. LASIX [Concomitant]
     Active Substance: FUROSEMIDE
  15. SIMVASTATIN(SIMVASTATIN) (UNKNOWN) [Concomitant]
  16. FOSAMAX(ALENDRONATE SODIUM) (UNKNOWN) [Concomitant]
  17. FOLBEE(TRIOBE /01502401/) (UNKNOWN) [Concomitant]
  18. LORTAB(PARACETAMOL, HYDROCODONE BITARTRATE) (TABLETS) [Concomitant]
  19. PROTONIX(PANTOPRAZOLE SODIUM SESQUIHYDRATE) (TABLETS) [Concomitant]
  20. PREMARIN(ESTROGENS CONJUGATED) (UNKNOWN) [Concomitant]
  21. RELACON(GUAIFENESIN, DEXTROMETHORPHAN HYDROBROMIDE, PSEUDOEPHEDRINE HYDROCHLORIDE) (UNKNOWN) [Concomitant]
  22. AMLODIPINE(AMLODIPINE) (UNKNOWN) [Concomitant]
  23. LEVAQUIN(LEVOFLOXACIN) (UNKNOWN) [Concomitant]
  24. LEVOTHYROXINE SODIUM(LEVOTHYROXINE SODIUM) (CAPSULES) [Concomitant]
  25. BENAZEPRIL(BENAZEPRIL) (UNKNOWN) [Concomitant]
  26. FLEXERIL(CYCLOBENZAPRINE HYDROCHLORIDE) (TABLETS) [Concomitant]
  27. FLONASE(FLUTICASONE PROPIONATE) (UNKNOWN) [Concomitant]
  28. BABY ASPIRIN(ACETYLSALICYLIC ACID) (CHEWABLE TABLET) [Concomitant]

REACTIONS (8)
  - Diarrhoea [None]
  - Oedema peripheral [None]
  - Rash [None]
  - Pain [None]
  - Dyspnoea [None]
  - Generalised oedema [None]
  - Headache [None]
  - Nausea [None]
